FAERS Safety Report 4787314-0 (Version None)
Quarter: 2005Q3

REPORT INFORMATION
  Report Type: 
  Country: None (occurrence: None)
  Receive Date: 20050926
  Receipt Date: 20050718
  Transmission Date: 20060218
  Serious: No
  Sender: FDA-Public Use
  Company Number: 216222

PATIENT
  Age: 46 Year
  Sex: Female

DRUGS (1)
  1. AVASTIN [Suspect]
     Indication: PANCREATIC CARCINOMA
     Dates: start: 20050712

REACTIONS (1)
  - ANXIETY [None]
